FAERS Safety Report 15832333 (Version 1)
Quarter: 2018Q4

REPORT INFORMATION
  Report Type: Spontaneous
  Country: US (occurrence: US)
  Receive Date: 20181219
  Receipt Date: 20181219
  Transmission Date: 20190205
  Serious: Yes (Hospitalization)
  Sender: FDA-Public Use
  Company Number: None

PATIENT
  Age: 73 Year
  Sex: Male
  Weight: 89.36 kg

DRUGS (1)
  1. CEFEPIME [Suspect]
     Active Substance: CEFEPIME HYDROCHLORIDE
     Indication: BACTERAEMIA
     Route: 042
     Dates: start: 20180907, end: 20180917

REACTIONS (8)
  - Disorientation [None]
  - Agitation [None]
  - Encephalopathy [None]
  - Encephalitis [None]
  - Headache [None]
  - Aggression [None]
  - Delirium [None]
  - Mental status changes [None]

NARRATIVE: CASE EVENT DATE: 20180917
